FAERS Safety Report 15662368 (Version 1)
Quarter: 2018Q4

REPORT INFORMATION
  Report Type: Spontaneous
  Country: GB (occurrence: GB)
  Receive Date: 20181127
  Receipt Date: 20181127
  Transmission Date: 20190205
  Serious: Yes (Other)
  Sender: FDA-Public Use
  Company Number: GB-ALLERGAN-1855054US

PATIENT
  Sex: Female

DRUGS (2)
  1. CITALOPRAM HYDROBROMIDE - BP [Suspect]
     Active Substance: CITALOPRAM HYDROBROMIDE
     Indication: PRODUCT USED FOR UNKNOWN INDICATION
     Dosage: UNK
     Route: 065
  2. TREPILINE [Concomitant]
     Active Substance: AMITRIPTYLINE
     Indication: PRODUCT USED FOR UNKNOWN INDICATION
     Route: 065

REACTIONS (14)
  - Paralysis [Unknown]
  - Weight decreased [Unknown]
  - Social avoidant behaviour [Unknown]
  - Fatigue [Unknown]
  - Nervousness [Unknown]
  - Suicidal ideation [Unknown]
  - Headache [Unknown]
  - Insomnia [Unknown]
  - Feeling abnormal [Unknown]
  - Dyspnoea [Unknown]
  - Chest pain [Unknown]
  - Hallucination, visual [Unknown]
  - Pain [Unknown]
  - Dysphemia [Unknown]
